FAERS Safety Report 15971781 (Version 1)
Quarter: 2019Q1

REPORT INFORMATION
  Report Type: Spontaneous
  Country: US (occurrence: US)
  Receive Date: 20190215
  Receipt Date: 20190215
  Transmission Date: 20190418
  Serious: Yes (Hospitalization, Other)
  Sender: FDA-Public Use
  Company Number: US-AMAG PHARMACEUTICALS, INC.-AMAG201806390

PATIENT
  Age: 32 Year
  Sex: Female
  Weight: 78.01 kg

DRUGS (4)
  1. MAKENA [Suspect]
     Active Substance: HYDROXYPROGESTERONE CAPROATE
     Indication: PREMATURE DELIVERY
     Dosage: 250 MG/ML, WEEKLY
     Route: 058
     Dates: start: 20181101, end: 20181130
  2. PRENATAL VITAMINS [Concomitant]
     Active Substance: VITAMINS
     Indication: VITAMIN SUPPLEMENTATION
     Dosage: UNK, QD
     Route: 048
     Dates: start: 201712
  3. PREVACID [Concomitant]
     Active Substance: LANSOPRAZOLE
     Indication: GASTROOESOPHAGEAL REFLUX DISEASE
     Dosage: 1-30MG
     Route: 048
     Dates: start: 20180920
  4. ACETYLSALICYLIC ACID [Concomitant]
     Active Substance: ASPIRIN
     Indication: PREMATURE SEPARATION OF PLACENTA
     Dosage: 81 MG, QD
     Route: 048
     Dates: start: 201712

REACTIONS (5)
  - Underdose [Unknown]
  - Injection site extravasation [Recovered/Resolved]
  - Cervical incompetence [Recovered/Resolved]
  - Incorrect product administration duration [Unknown]
  - Premature delivery [Recovered/Resolved]

NARRATIVE: CASE EVENT DATE: 20181116
